FAERS Safety Report 25401068 (Version 1)
Quarter: 2025Q2

REPORT INFORMATION
  Report Type: Spontaneous
  Country: FR (occurrence: FR)
  Receive Date: 20250605
  Receipt Date: 20250605
  Transmission Date: 20250717
  Serious: Yes (Hospitalization)
  Sender: ANI
  Company Number: FR-ANIPHARMA-2025-FR-000083

PATIENT
  Age: 86 Year
  Sex: Female

DRUGS (6)
  1. CANDESARTAN CILEXETIL [Suspect]
     Active Substance: CANDESARTAN CILEXETIL
     Indication: Product administration error
     Route: 048
     Dates: start: 20250416, end: 20250416
  2. MOLSIDOMINE [Suspect]
     Active Substance: MOLSIDOMINE
     Route: 048
     Dates: start: 20250416, end: 20250416
  3. AMIODARONE [Suspect]
     Active Substance: AMIODARONE
     Route: 048
  4. ELIQUIS [Concomitant]
     Active Substance: APIXABAN
     Dates: start: 20250416, end: 20250416
  5. ACETAMINOPHEN [Concomitant]
     Active Substance: ACETAMINOPHEN
     Dates: start: 20250416, end: 20250416
  6. Spasfon [Concomitant]
     Dates: start: 20250416, end: 20250416

REACTIONS (5)
  - Bradycardia [Recovered/Resolved]
  - Confusional state [Recovered/Resolved]
  - Hypotension [Recovered/Resolved]
  - Drug interaction [Recovered/Resolved]
  - Wrong patient received product [Recovered/Resolved]

NARRATIVE: CASE EVENT DATE: 20250416
